FAERS Safety Report 10202792 (Version 1)
Quarter: 2014Q2

REPORT INFORMATION
  Report Type: Spontaneous
  Country: CN (occurrence: CN)
  Receive Date: 20140528
  Receipt Date: 20140528
  Transmission Date: 20141212
  Serious: Yes (Death, Other)
  Sender: FDA-Public Use
  Company Number: PHHY2014CN060242

PATIENT
  Age: 48 Year
  Sex: Female

DRUGS (3)
  1. CARBOPLATIN [Suspect]
     Indication: VAGINAL CANCER
     Dosage: 500 MG, (AUC 5 X 500 MG ON DAY 1 EVERY 21 DAYS)
  2. PACLITAXEL [Suspect]
     Indication: VAGINAL CANCER
  3. PACLITAXEL [Suspect]
     Dosage: 135 MG/M2, UNK

REACTIONS (11)
  - Respiratory failure [Fatal]
  - Drug intolerance [Unknown]
  - Bone marrow failure [Unknown]
  - Nausea [Unknown]
  - Fatigue [Unknown]
  - Lymphadenopathy [Unknown]
  - Squamous cell carcinoma [Unknown]
  - Metastases to lung [Unknown]
  - Haemoptysis [Unknown]
  - Pulmonary mass [Unknown]
  - Drug ineffective [Unknown]
